FAERS Safety Report 5740403-6 (Version None)
Quarter: 2008Q2

REPORT INFORMATION
  Report Type: 
  Country: None (occurrence: None)
  Receive Date: 20080516
  Receipt Date: 20080509
  Transmission Date: 20081010
  Serious: Yes (Disabling)
  Sender: FDA-Public Use
  Company Number: DE-ASTRAZENECA-2008PK00996

PATIENT
  Age: 73 Year
  Sex: Male

DRUGS (1)
  1. ZOLADEX [Suspect]
     Indication: PROSTATE CANCER
     Dates: start: 20070801, end: 20071101

REACTIONS (3)
  - ASTHENIA [None]
  - HOT FLUSH [None]
  - SWEAT GLAND DISORDER [None]
